FAERS Safety Report 6751734-5 (Version None)
Quarter: 2010Q2

REPORT INFORMATION
  Report Type: 
  Country: None (occurrence: None)
  Receive Date: 20100526
  Receipt Date: 20100419
  Transmission Date: 20101027
  Serious: Yes (Hospitalization)
  Sender: FDA-Public Use
  Company Number: 307317

PATIENT
  Age: 32 Year
  Sex: Female
  Weight: 70.3 kg

DRUGS (2)
  1. VICTOZA [Suspect]
     Indication: TYPE 2 DIABETES MELLITUS
     Dosage: 0.6 MG, QD, SUBCUTANCEOUS
     Route: 058
     Dates: start: 20100401, end: 20100408
  2. METFORMIN HCL [Concomitant]

REACTIONS (1)
  - PANCREATITIS [None]
